FAERS Safety Report 9468969 (Version 1)
Quarter: 2013Q3

REPORT INFORMATION
  Report Type: Spontaneous
  Country: US (occurrence: US)
  Receive Date: 20130821
  Receipt Date: 20130821
  Transmission Date: 20140515
  Serious: Yes (Other)
  Sender: FDA-Public Use
  Company Number: CHPA2013US012911

PATIENT
  Sex: Female

DRUGS (2)
  1. EXCEDRIN EXTRA STRENGTH [Suspect]
     Dosage: UNK, UNK
     Route: 048
  2. EXCEDRIN MENSTRUAL COMPLETE [Suspect]
     Dosage: UNK, UNK
     Route: 048

REACTIONS (1)
  - Withdrawal syndrome [Unknown]
